FAERS Safety Report 5441133-0 (Version None)
Quarter: 2007Q3

REPORT INFORMATION
  Report Type: 
  Country: None (occurrence: None)
  Receive Date: 20070831
  Receipt Date: 20070822
  Transmission Date: 20080115
  Serious: Yes (Other)
  Sender: FDA-Public Use
  Company Number: GB-PFIZER INC-2007066163

PATIENT
  Sex: Male
  Weight: 61 kg

DRUGS (6)
  1. CHAMPIX [Suspect]
     Indication: SMOKING CESSATION THERAPY
     Route: 048
     Dates: start: 20070712, end: 20070720
  2. SIMVASTATIN [Concomitant]
     Route: 048
  3. MIRTAZAPINE [Concomitant]
     Route: 048
  4. ASPIRIN [Concomitant]
     Route: 048
  5. TEMAZEPAM [Concomitant]
     Route: 048
  6. DIHYDROCODEINE BITARTRATE INJ [Concomitant]
     Route: 048

REACTIONS (1)
  - MENTAL DISORDER [None]
